FAERS Safety Report 5482945-7 (Version None)
Quarter: 2007Q4

REPORT INFORMATION
  Report Type: 
  Country: None (occurrence: None)
  Receive Date: 20071011
  Receipt Date: 20071010
  Transmission Date: 20080405
  Serious: Yes (Other)
  Sender: FDA-Public Use
  Company Number: US-ROXANE LABORATORIES, INC-2007-DE-05995GD

PATIENT
  Age: 2 Year
  Sex: Female
  Weight: 14.6 kg

DRUGS (6)
  1. MORPHINE [Suspect]
     Indication: GENERAL ANAESTHESIA
     Route: 042
  2. LIDOCAINE [Suspect]
     Indication: LOCAL ANAESTHESIA
  3. PROPOFOL [Suspect]
     Indication: INDUCTION OF ANAESTHESIA
     Route: 042
  4. SEVOFLURANE [Suspect]
     Indication: MAINTENANCE OF ANAESTHESIA
  5. DEXAMETHASONE 0.5MG TAB [Concomitant]
     Route: 042
  6. ONDANSETRON [Concomitant]
     Route: 042

REACTIONS (3)
  - APNOEA [None]
  - DELAYED RECOVERY FROM ANAESTHESIA [None]
  - RESPIRATORY ARREST [None]
